FAERS Safety Report 5475833-3 (Version None)
Quarter: 2007Q4

REPORT INFORMATION
  Report Type: 
  Country: None (occurrence: None)
  Receive Date: 20071003
  Receipt Date: 20070928
  Transmission Date: 20080405
  Serious: Yes (Other)
  Sender: FDA-Public Use
  Company Number: B0489453A

PATIENT
  Age: 39 Year
  Sex: Female

DRUGS (4)
  1. DARAPRIM [Suspect]
     Indication: DRUG USE FOR UNKNOWN INDICATION
     Dosage: 25MG THREE TIMES PER DAY
     Route: 048
     Dates: start: 20070715
  2. SULFADIAZINE [Suspect]
     Indication: DRUG USE FOR UNKNOWN INDICATION
     Dosage: 500MG FOUR TIMES PER DAY
     Route: 048
     Dates: start: 20070715, end: 20070828
  3. NEURONTIN [Concomitant]
     Indication: DRUG USE FOR UNKNOWN INDICATION
     Dosage: 200MG THREE TIMES PER DAY
     Route: 048
     Dates: start: 20070715
  4. FOLINIC ACID [Concomitant]
     Indication: DRUG USE FOR UNKNOWN INDICATION
     Dosage: 15MG PER DAY
     Route: 048
     Dates: start: 20070715

REACTIONS (5)
  - AGRANULOCYTOSIS [None]
  - FATIGUE [None]
  - HEMIPLEGIA [None]
  - LEUKOPENIA [None]
  - VOMITING [None]
